FAERS Safety Report 12953615 (Version 2)
Quarter: 2017Q1

REPORT INFORMATION
  Report Type: Report from Study
  Country: None (occurrence: RO)
  Receive Date: 20161117
  Receipt Date: 20170123
  Transmission Date: 20170428
  Serious: Yes (Death, Other)
  Sender: FDA-Public Use
  Company Number: RO-ABBVIE-16P-135-1784296-00

PATIENT
  Age: 63 Year
  Sex: Male

DRUGS (8)
  1. EXVIERA [Suspect]
     Active Substance: DASABUVIR
     Indication: HEPATIC CIRRHOSIS
  2. VIEKIRAX [Suspect]
     Active Substance: OMBITASVIR\PARITAPREVIR\RITONAVIR
     Indication: HEPATITIS C
     Route: 048
     Dates: start: 20160517, end: 20160809
  3. VIEKIRAX [Suspect]
     Active Substance: OMBITASVIR\PARITAPREVIR\RITONAVIR
     Indication: HEPATIC CIRRHOSIS
  4. EXVIERA [Suspect]
     Active Substance: DASABUVIR
     Indication: HEPATITIS C
     Route: 048
     Dates: start: 20160517, end: 20160809
  5. CARVEDILOL. [Concomitant]
     Active Substance: CARVEDILOL
     Indication: HYPERTENSION
     Route: 048
     Dates: start: 20160517
  6. MODERIBA [Suspect]
     Active Substance: RIBAVIRIN
     Indication: HEPATIC CIRRHOSIS
  7. MODERIBA [Suspect]
     Active Substance: RIBAVIRIN
     Indication: HEPATITIS C
     Route: 048
     Dates: start: 20160517, end: 20160809
  8. DIUREX [Concomitant]
     Active Substance: AMILORIDE HYDROCHLORIDE\HYDROCHLOROTHIAZIDE
     Indication: HYPERTENSION
     Dosage: 50/20MG
     Route: 048
     Dates: start: 20160517

REACTIONS (14)
  - Portal hypertension [Unknown]
  - Abdominal pain [Unknown]
  - Pleurisy [Unknown]
  - Hepatic neoplasm [Unknown]
  - Hepatosplenomegaly [Unknown]
  - Fatigue [Not Recovered/Not Resolved]
  - Retroperitoneal neoplasm [Unknown]
  - Atelectasis [Unknown]
  - Ascites [Unknown]
  - Peritoneal neoplasm [Unknown]
  - Decreased appetite [Not Recovered/Not Resolved]
  - Death [Fatal]
  - Renal neoplasm [Unknown]
  - Cardiomegaly [Unknown]

NARRATIVE: CASE EVENT DATE: 20160517
